FAERS Safety Report 16719990 (Version 2)
Quarter: 2019Q4

REPORT INFORMATION
  Report Type: Spontaneous
  Country: US (occurrence: US)
  Receive Date: 20190820
  Receipt Date: 20191122
  Transmission Date: 20200122
  Serious: Yes (Other)
  Sender: FDA-Public Use
  Company Number: US-PFIZER INC-2019353468

PATIENT
  Age: 40 Year
  Sex: Female
  Weight: 122.9 kg

DRUGS (4)
  1. LYRICA [Suspect]
     Active Substance: PREGABALIN
     Indication: PAIN
  2. LYRICA [Suspect]
     Active Substance: PREGABALIN
     Indication: FIBROMYALGIA
     Dosage: 300 MG, 2X/DAY
     Dates: start: 2018
  3. CARAFATE [Suspect]
     Active Substance: SUCRALFATE
     Dosage: 1 G, AS NEEDED (1 GM TABLET AS NEEDED )
     Dates: start: 201908
  4. CARAFATE [Suspect]
     Active Substance: SUCRALFATE
     Indication: CHRONIC GASTRITIS
     Dosage: 1 G, AS NEEDED (1 GM TABLET AS NEEDED )
     Dates: start: 201605, end: 201606

REACTIONS (2)
  - Syncope [Not Recovered/Not Resolved]
  - Gastritis [Unknown]
